FAERS Safety Report 24208075 (Version 1)
Quarter: 2024Q3

REPORT INFORMATION
  Report Type: Report from Study
  Country: IT (occurrence: IT)
  Receive Date: 20240814
  Receipt Date: 20240814
  Transmission Date: 20241017
  Serious: Yes (Other)
  Sender: JOHNSON AND JOHNSON
  Company Number: IT-JNJFOC-20240432858

PATIENT
  Age: 60 Year
  Sex: Male

DRUGS (2)
  1. DARZALEX [Suspect]
     Active Substance: DARATUMUMAB
     Indication: Plasma cell myeloma
     Dosage: DOSE:15(UNSPECIFIED UNITS)
     Route: 065
     Dates: start: 20240213, end: 20240213
  2. DARZALEX [Suspect]
     Active Substance: DARATUMUMAB
     Dosage: DOSE:15(UNSPECIFIED UNITS)
     Route: 065
     Dates: start: 20240326, end: 20240326

REACTIONS (1)
  - Hypoxia [Recovered/Resolved]

NARRATIVE: CASE EVENT DATE: 20240326
